FAERS Safety Report 13168471 (Version 2)
Quarter: 2017Q2

REPORT INFORMATION
  Report Type: Spontaneous
  Country: US (occurrence: US)
  Receive Date: 20170131
  Receipt Date: 20170525
  Transmission Date: 20170830
  Serious: No
  Sender: FDA-Public Use
  Company Number: US-TEVA-727448ACC

PATIENT
  Age: 56 Year
  Sex: Female

DRUGS (1)
  1. COPAXONE [Suspect]
     Active Substance: GLATIRAMER ACETATE
     Dosage: UNKNOWN FORM STRENGTH
     Route: 065

REACTIONS (4)
  - Pain [Recovered/Resolved with Sequelae]
  - Injection site reaction [Recovered/Resolved with Sequelae]
  - Rash generalised [Recovered/Resolved]
  - Swelling [Recovered/Resolved with Sequelae]

NARRATIVE: CASE EVENT DATE: 201701
